FAERS Safety Report 17491202 (Version 1)
Quarter: 2020Q1

REPORT INFORMATION
  Report Type: Spontaneous
  Country: US (occurrence: US)
  Receive Date: 20200303
  Receipt Date: 20200303
  Transmission Date: 20200409
  Serious: No
  Sender: FDA-Public Use
  Company Number: US-SA-2020SA054061

PATIENT
  Sex: Female

DRUGS (15)
  1. TRAMADOL. [Concomitant]
     Active Substance: TRAMADOL
  2. BIOTIN [Concomitant]
     Active Substance: BIOTIN
  3. PREDNISONE. [Concomitant]
     Active Substance: PREDNISONE
  4. RESTASIS [Concomitant]
     Active Substance: CYCLOSPORINE
  5. SYNTHROID [Concomitant]
     Active Substance: LEVOTHYROXINE SODIUM
  6. ARAVA [Suspect]
     Active Substance: LEFLUNOMIDE
     Dosage: UNK
     Dates: start: 201506
  7. ASPIRIN [ACETYLSALICYLIC ACID] [Concomitant]
     Active Substance: ASPIRIN
  8. LUMIFY [Concomitant]
     Active Substance: BRIMONIDINE TARTRATE
  9. VITAMIN D3 [Concomitant]
     Active Substance: CHOLECALCIFEROL
  10. PENLAC [Concomitant]
     Active Substance: CICLOPIROX
  11. XALATAN [Concomitant]
     Active Substance: LATANOPROST
  12. MAG-OX [Concomitant]
     Active Substance: MAGNESIUM OXIDE
  13. ALBUTEROL SULFATE. [Concomitant]
     Active Substance: ALBUTEROL SULFATE
  14. VITAMIN B12 [Concomitant]
     Active Substance: CYANOCOBALAMIN
  15. MICRO-K [Concomitant]
     Active Substance: POTASSIUM CHLORIDE

REACTIONS (1)
  - Dyspnoea [Unknown]
